FAERS Safety Report 4413540-6 (Version None)
Quarter: 2004Q2

REPORT INFORMATION
  Report Type: 
  Country: None (occurrence: None)
  Receive Date: 20040630
  Receipt Date: 20040309
  Transmission Date: 20050107
  Serious: No
  Sender: FDA-Public Use
  Company Number: 04P-163-0252686-00

PATIENT
  Age: 43 Year
  Sex: Female
  Weight: 104.3273 kg

DRUGS (7)
  1. HUMIRA [Suspect]
     Indication: RHEUMATOID ARTHRITIS
     Dosage: 40 MG, 1 IN 2 WK, SUBCUTANEOUS
     Route: 058
     Dates: start: 20031201, end: 20040201
  2. PREDNISONE [Concomitant]
  3. METHOTREXATE [Concomitant]
  4. PROVENTIL [Concomitant]
  5. PROPACET 100 [Concomitant]
  6. LEVOTHYROXINE SODIUM [Concomitant]
  7. CREAMS [Concomitant]

REACTIONS (4)
  - INFLUENZA [None]
  - NASOPHARYNGITIS [None]
  - PRURITUS [None]
  - RASH [None]
